FAERS Safety Report 8932643 (Version 2)
Quarter: 2012Q4

REPORT INFORMATION
  Report Type: 
  Country: US (occurrence: US)
  Receive Date: 20121129
  Receipt Date: 20121228
  Transmission Date: 20130627
  Serious: Yes (Other)
  Sender: FDA-Public Use
  Company Number: US-JNJFOC-20121111142

PATIENT
  Age: 44 Year
  Sex: Female
  Weight: 52.62 kg

DRUGS (8)
  1. REMICADE [Suspect]
     Indication: CROHN^S DISEASE
     Dosage: for about 1 year
     Route: 042
     Dates: start: 20120409
  2. REMICADE [Suspect]
     Indication: CROHN^S DISEASE
     Route: 042
     Dates: start: 20121003, end: 20121003
  3. REMICADE [Suspect]
     Indication: CROHN^S DISEASE
     Route: 042
     Dates: start: 201208
  4. TRAZODONE [Concomitant]
     Indication: INSOMNIA
     Dosage: at bedtime, 30 days, 5 refills
     Route: 048
     Dates: start: 20090224
  5. TRAZODONE [Concomitant]
     Indication: IRRITABLE BOWEL SYNDROME
     Dosage: at bedtime, 30 days, 5 refills
     Route: 048
     Dates: start: 20090224
  6. PAXIL [Concomitant]
     Indication: DEPRESSION
     Dosage: 0 days, 0 refills
     Route: 048
     Dates: start: 20091222
  7. ALPRAZOLAM [Concomitant]
     Indication: ANXIETY
     Dosage: 0 days, 0 refills
     Route: 048
     Dates: start: 20091222
  8. MULTIVITAMINS [Concomitant]
     Route: 065

REACTIONS (2)
  - Systemic lupus erythematosus [Recovering/Resolving]
  - Therapeutic response decreased [Recovering/Resolving]
